FAERS Safety Report 7692215 (Version 3)
Quarter: 2012Q4

REPORT INFORMATION
  Report Type: 
  Country: DE (occurrence: DE)
  Receive Date: 20101205
  Receipt Date: 20121129
  Transmission Date: 20130627
  Serious: Yes (Life-Threatening, Hospitalization)
  Sender: FDA-Public Use
  Company Number: DE-JNJFOC-20101200260

PATIENT
  Age: 64 Year
  Sex: Male

DRUGS (2)
  1. REMICADE [Suspect]
     Indication: CROHN^S DISEASE
     Dosage: 5 months
     Route: 042
     Dates: start: 20100412, end: 20100907
  2. AZATHIOPRIN [Concomitant]
     Dosage: start date reported as future date of 28-DEC-2010
     Dates: end: 20100918

REACTIONS (9)
  - Peritoneal tuberculosis [Recovering/Resolving]
  - Ascites [Recovered/Resolved]
  - Vomiting [Unknown]
  - Nausea [Unknown]
  - Skin burning sensation [Unknown]
  - Hepatic enzyme increased [Unknown]
  - Hyperuricaemia [Unknown]
  - Pain in extremity [Unknown]
  - Fatigue [Recovering/Resolving]
